FAERS Safety Report 20852284 (Version 1)
Quarter: 2022Q2

REPORT INFORMATION
  Report Type: Spontaneous
  Country: US (occurrence: US)
  Receive Date: 20220520
  Receipt Date: 20220520
  Transmission Date: 20220721
  Serious: No
  Sender: FDA-Public Use
  Company Number: US-BAXTER-2022BAX010395

PATIENT

DRUGS (1)
  1. MIDAZOLAM HYDROCHLORIDE [Suspect]
     Active Substance: MIDAZOLAM HYDROCHLORIDE
     Indication: Sedative therapy
     Route: 065

REACTIONS (5)
  - Discomfort [Unknown]
  - Sedation complication [Unknown]
  - Device infusion issue [Unknown]
  - Device alarm issue [Unknown]
  - Tachycardia [Unknown]

NARRATIVE: CASE EVENT DATE: 20220322
